FAERS Safety Report 26102351 (Version 2)
Quarter: 2025Q4

REPORT INFORMATION
  Report Type: Spontaneous
  Country: RU (occurrence: RU)
  Receive Date: 20251128
  Receipt Date: 20251210
  Transmission Date: 20260117
  Serious: Yes (Hospitalization, Other)
  Sender: ALEXION PHARMACEUTICALS
  Company Number: RU-ASTRAZENECA-202511EAF024543RU

PATIENT
  Age: 31 Year
  Sex: Female

DRUGS (2)
  1. BUDESONIDE\FORMOTEROL [Suspect]
     Active Substance: BUDESONIDE\FORMOTEROL
     Indication: Asthma
     Route: 065
  2. ETHINYL ESTRADIOL\GESTODENE [Suspect]
     Active Substance: ETHINYL ESTRADIOL\GESTODENE
     Indication: Oral contraception
     Route: 065

REACTIONS (8)
  - Pulmonary embolism [Recovering/Resolving]
  - Pelvic venous thrombosis [Unknown]
  - Pulmonary hypertension [Unknown]
  - Cardiomegaly [Unknown]
  - Sinus tachycardia [Unknown]
  - Bundle branch block right [Unknown]
  - Blood cholesterol abnormal [Unknown]
  - Fibrin D dimer increased [Unknown]
